FAERS Safety Report 6069622-9 (Version None)
Quarter: 2009Q1

REPORT INFORMATION
  Report Type: 
  Country: None (occurrence: None)
  Receive Date: 20090209
  Receipt Date: 20090203
  Transmission Date: 20090719
  Serious: Yes (Other)
  Sender: FDA-Public Use
  Company Number: GB-BRISTOL-MYERS SQUIBB COMPANY-14396253

PATIENT
  Age: 54 Year
  Sex: Female
  Weight: 110 kg

DRUGS (3)
  1. GLUCOPHAGE [Suspect]
     Route: 048
     Dates: start: 20081001, end: 20081101
  2. MICARDIS [Concomitant]
     Route: 048
     Dates: start: 20081001
  3. NOVOLOG MIX 70/30 [Concomitant]
     Dosage: STRENGTH:30
     Route: 058

REACTIONS (5)
  - ALOPECIA [None]
  - DYSPHONIA [None]
  - PITUITARY-DEPENDENT CUSHING'S SYNDROME [None]
  - SWOLLEN TONGUE [None]
  - TONGUE DISORDER [None]
